FAERS Safety Report 5700479-9 (Version None)
Quarter: 2008Q2

REPORT INFORMATION
  Report Type: 
  Country: None (occurrence: None)
  Receive Date: 20080410
  Receipt Date: 20080401
  Transmission Date: 20081010
  Serious: Yes (Other)
  Sender: FDA-Public Use
  Company Number: GR-PFIZER INC-2008029314

PATIENT
  Sex: Male

DRUGS (2)
  1. ZITHROMAX [Suspect]
     Indication: PROSTATITIS
     Route: 048
     Dates: start: 20080301, end: 20080301
  2. TABRIN [Concomitant]
     Route: 048

REACTIONS (3)
  - CHOLINERGIC SYNDROME [None]
  - OFF LABEL USE [None]
  - PROSTATIC PAIN [None]
